FAERS Safety Report 16107893 (Version 1)
Quarter: 2019Q1

REPORT INFORMATION
  Report Type: Spontaneous
  Country: TN (occurrence: TN)
  Receive Date: 20190322
  Receipt Date: 20190322
  Transmission Date: 20190418
  Serious: Yes (Life-Threatening)
  Sender: FDA-Public Use
  Company Number: TN-ALLERGAN-1912589US

PATIENT
  Sex: Male

DRUGS (2)
  1. LOXEN [Concomitant]
  2. NEBIVOLOL HCL - BP [Suspect]
     Active Substance: NEBIVOLOL
     Indication: HYPERTENSION
     Dosage: 5 MG, QD
     Route: 048

REACTIONS (3)
  - Medication error [Unknown]
  - Hyperkalaemia [Unknown]
  - Bradycardia [Unknown]
